FAERS Safety Report 13084186 (Version 1)
Quarter: 2017Q1

REPORT INFORMATION
  Report Type: Spontaneous
  Country: DE (occurrence: DE)
  Receive Date: 20170104
  Receipt Date: 20170104
  Transmission Date: 20170428
  Serious: Yes (Other)
  Sender: FDA-Public Use
  Company Number: DE-ASTRAZENECA-2016SF37952

PATIENT
  Sex: Female

DRUGS (6)
  1. LISINOPRIL. [Interacting]
     Active Substance: LISINOPRIL
     Route: 048
  2. CRESTOR [Suspect]
     Active Substance: ROSUVASTATIN CALCIUM
     Route: 048
  3. BISOPROLOL [Interacting]
     Active Substance: BISOPROLOL
     Route: 048
  4. RANEXA [Interacting]
     Active Substance: RANOLAZINE
     Route: 048
     Dates: start: 20160403
  5. RANEXA [Interacting]
     Active Substance: RANOLAZINE
     Route: 048
     Dates: start: 20160226
  6. ASS 100 [Interacting]
     Active Substance: ASPIRIN
     Route: 048

REACTIONS (4)
  - Drug interaction [Unknown]
  - Hypoglycaemia [Recovered/Resolved]
  - Loss of consciousness [Recovered/Resolved]
  - Accident [Recovered/Resolved]

NARRATIVE: CASE EVENT DATE: 20160406
